FAERS Safety Report 18155672 (Version 1)
Quarter: 2020Q3

REPORT INFORMATION
  Report Type: Spontaneous
  Country: US (occurrence: US)
  Receive Date: 20200814
  Receipt Date: 20200814
  Transmission Date: 20201103
  Serious: Yes (Life-Threatening, Hospitalization, Disabling)
  Sender: FDA-Public Use
  Company Number: None

PATIENT
  Age: 73 Year
  Sex: Male
  Weight: 116.46 kg

DRUGS (7)
  1. KEYTRUDA [Suspect]
     Active Substance: PEMBROLIZUMAB
     Indication: NEUROENDOCRINE CARCINOMA OF THE SKIN
     Dosage: ?          OTHER FREQUENCY:EVERY 21 DAYS;?
     Route: 041
     Dates: start: 20200129, end: 20200129
  2. VITAMIN B12 1,000 MCG [Concomitant]
  3. SYMBICORT [Concomitant]
     Active Substance: BUDESONIDE\FORMOTEROL FUMARATE DIHYDRATE
  4. CLOPIDOGREL [Concomitant]
     Active Substance: CLOPIDOGREL BISULFATE
  5. DUTASTERIDE 0.5 MG/TAMSULOSIN ER 0.4 MG [Concomitant]
  6. EZETIMIBE 10 MG/SIMVASTATIN 20 MG [Concomitant]
  7. LOSARTAN 50 MG [Concomitant]
     Active Substance: LOSARTAN

REACTIONS (4)
  - Hepatitis [None]
  - Asthenia [None]
  - Transaminases increased [None]
  - Myositis [None]

NARRATIVE: CASE EVENT DATE: 20200129
